FAERS Safety Report 16753242 (Version 1)
Quarter: 2019Q3

REPORT INFORMATION
  Report Type: Spontaneous
  Country: RU (occurrence: RU)
  Receive Date: 20190829
  Receipt Date: 20190829
  Transmission Date: 20191005
  Serious: Yes (Other)
  Sender: FDA-Public Use
  Company Number: RU-SUN PHARMACEUTICAL INDUSTRIES LTD-2019R1-217921

PATIENT
  Age: 39 Year
  Sex: Female

DRUGS (3)
  1. ACETAZOLAMIDE. [Suspect]
     Active Substance: ACETAZOLAMIDE
     Indication: OLIGURIA
     Dosage: 300 MILLIGRAM, QD
     Route: 065
  2. SILDENAFIL. [Suspect]
     Active Substance: SILDENAFIL
     Indication: PULMONARY ARTERIAL HYPERTENSION
     Dosage: UNK
     Route: 065
  3. ALBUMIN [Suspect]
     Active Substance: ALBUMIN HUMAN
     Indication: OLIGURIA
     Dosage: UNK
     Route: 065

REACTIONS (3)
  - Metabolic acidosis [Recovering/Resolving]
  - Swelling [Recovering/Resolving]
  - Condition aggravated [Recovering/Resolving]
